FAERS Safety Report 24803376 (Version 1)
Quarter: 2025Q1

REPORT INFORMATION
  Report Type: Spontaneous
  Country: JP (occurrence: JP)
  Receive Date: 20250103
  Receipt Date: 20250103
  Transmission Date: 20250409
  Serious: Yes (Death, Life-Threatening, Hospitalization, Other)
  Sender: ALKEM
  Company Number: None

PATIENT
  Age: 88 Year
  Sex: Female

DRUGS (13)
  1. LINEZOLID [Suspect]
     Active Substance: LINEZOLID
     Indication: Brain abscess
     Dosage: 1.2 GRAM, QD (EVERY ONE DAY)
     Route: 065
  2. LINEZOLID [Suspect]
     Active Substance: LINEZOLID
     Indication: Pulmonary nocardiosis
  3. TACROLIMUS [Suspect]
     Active Substance: TACROLIMUS
     Indication: Nephrotic syndrome
     Dosage: 1 MILLIGRAM, QD (EVERY ONE DAY)
     Route: 065
  4. TACROLIMUS [Suspect]
     Active Substance: TACROLIMUS
     Indication: Primary amyloidosis
     Route: 065
  5. TACROLIMUS [Suspect]
     Active Substance: TACROLIMUS
     Indication: Rheumatoid arthritis
  6. METHYLPREDNISOLONE [Suspect]
     Active Substance: METHYLPREDNISOLONE
     Indication: Primary amyloidosis
     Dosage: 8 MILLIGRAM, QD (EVERY ONE DAY)
     Route: 065
  7. METHYLPREDNISOLONE [Suspect]
     Active Substance: METHYLPREDNISOLONE
     Indication: Nephrotic syndrome
     Route: 065
  8. METHYLPREDNISOLONE [Suspect]
     Active Substance: METHYLPREDNISOLONE
     Route: 065
  9. METHYLPREDNISOLONE [Suspect]
     Active Substance: METHYLPREDNISOLONE
     Route: 065
  10. METHYLPREDNISOLONE [Suspect]
     Active Substance: METHYLPREDNISOLONE
     Route: 065
  11. PREDNISOLONE [Suspect]
     Active Substance: PREDNISOLONE
     Indication: Nephrotic syndrome
     Dosage: 40 MILLIGRAM, QD (EVERY ONE DAY)
     Route: 065
  12. PREDNISOLONE [Suspect]
     Active Substance: PREDNISOLONE
     Indication: Primary amyloidosis
     Dosage: 5 MILLIGRAM, ONCE WEEKLY (EVERY 1 WEEK)
     Route: 065
  13. PREDNISOLONE [Suspect]
     Active Substance: PREDNISOLONE
     Route: 065

REACTIONS (9)
  - Multiple organ dysfunction syndrome [Fatal]
  - Septic shock [Fatal]
  - Pulmonary nocardiosis [Unknown]
  - Bronchopulmonary aspergillosis [Unknown]
  - Thrombocytopenia [Not Recovered/Not Resolved]
  - Brain abscess [Recovering/Resolving]
  - Decreased appetite [Unknown]
  - Malaise [Unknown]
  - Skin ulcer [Unknown]

NARRATIVE: CASE EVENT DATE: 20210101
